FAERS Safety Report 5621035-7 (Version None)
Quarter: 2008Q1

REPORT INFORMATION
  Report Type: 
  Country: None (occurrence: None)
  Receive Date: 20080208
  Receipt Date: 20080129
  Transmission Date: 20080703
  Serious: Yes (Other)
  Sender: FDA-Public Use
  Company Number: US-PFIZER INC-2008010806

PATIENT
  Sex: Female
  Weight: 70.5 kg

DRUGS (3)
  1. CHANTIX [Suspect]
     Indication: SMOKING CESSATION THERAPY
     Route: 048
  2. ALPRAZOLAM [Concomitant]
  3. VITAMINS [Concomitant]

REACTIONS (9)
  - DYSPHONIA [None]
  - MUTISM [None]
  - NAUSEA [None]
  - PRURITUS [None]
  - RASH MACULAR [None]
  - SWELLING FACE [None]
  - SWOLLEN TONGUE [None]
  - URTICARIA [None]
  - VOMITING [None]
